FAERS Safety Report 7861837-X (Version None)
Quarter: 2011Q4

REPORT INFORMATION
  Report Type: 
  Country: None (occurrence: None)
  Receive Date: 20111026
  Receipt Date: 20111011
  Transmission Date: 20120403
  Serious: Yes (Other)
  Sender: FDA-Public Use
  Company Number: FK201102297

PATIENT
  Age: 54 Year
  Sex: Female

DRUGS (4)
  1. FLUOROURACIL [Suspect]
     Indication: COLORECTAL CANCER METASTATIC
  2. LEUCOVORIN (CALCIUM FOLINATE) (CALCIUM FOLINATE) [Concomitant]
  3. OXALIPLATIN (OXALIPLATIN) (OALIPLATIN) [Concomitant]
  4. BEVACIZUMAB (BEVACIZUMAB) (BEVACIZUMAB) [Concomitant]

REACTIONS (4)
  - HAEMOLYSIS [None]
  - NEUROPATHY PERIPHERAL [None]
  - BLOOD BILIRUBIN UNCONJUGATED INCREASED [None]
  - BLOOD IRON INCREASED [None]
